FAERS Safety Report 16807088 (Version 5)
Quarter: 2022Q2

REPORT INFORMATION
  Report Type: Spontaneous
  Country: BR (occurrence: BR)
  Receive Date: 20190913
  Receipt Date: 20220627
  Transmission Date: 20220720
  Serious: Yes (Death, Hospitalization, Other)
  Sender: FDA-Public Use
  Company Number: BR-GLAXOSMITHKLINE-BR2019AMR164309

PATIENT

DRUGS (1)
  1. NUCALA [Suspect]
     Active Substance: MEPOLIZUMAB
     Indication: Asthma
     Dosage: 100 MG
     Dates: start: 20190328

REACTIONS (6)
  - Pulmonary embolism [Fatal]
  - Pneumonia [Recovered/Resolved]
  - Cardiac failure [Recovered/Resolved]
  - Limb injury [Recovered/Resolved]
  - Ulcer [Unknown]
  - Cardiac disorder [Unknown]
